FAERS Safety Report 18822751 (Version 1)
Quarter: 2021Q1

REPORT INFORMATION
  Report Type: Spontaneous
  Country: US (occurrence: US)
  Receive Date: 20210202
  Receipt Date: 20210202
  Transmission Date: 20210419
  Serious: No
  Sender: FDA-Public Use
  Company Number: US-PAIPHARMA-2020-US-014526

PATIENT
  Age: 85 Year
  Sex: Male
  Weight: 90.72 kg

DRUGS (7)
  1. CARVEDILOL. [Concomitant]
     Active Substance: CARVEDILOL
  2. VALSARTAN. [Concomitant]
     Active Substance: VALSARTAN
  3. MULTIVITAMIN [Concomitant]
     Active Substance: VITAMINS
  4. NYSTATIN ORAL SUSPENSION USP [Suspect]
     Active Substance: NYSTATIN
     Indication: CANDIDA INFECTION
     Dosage: 4 ML PER DAILY  ( 4 DROPPERS A DAY)
     Route: 048
     Dates: start: 20200625, end: 20200717
  5. AMLODIPINE [Concomitant]
     Active Substance: AMLODIPINE BESYLATE
  6. WARFARIN [Concomitant]
     Active Substance: WARFARIN
  7. MAGNESIUM SULFATE. [Concomitant]
     Active Substance: MAGNESIUM SULFATE

REACTIONS (4)
  - Lip blister [Recovering/Resolving]
  - Mucosa vesicle [Recovering/Resolving]
  - Off label use [Recovered/Resolved]
  - Lip swelling [Recovering/Resolving]

NARRATIVE: CASE EVENT DATE: 20200625
